FAERS Safety Report 4880817-X (Version None)
Quarter: 2006Q1

REPORT INFORMATION
  Report Type: 
  Country: None (occurrence: None)
  Receive Date: 20060110
  Receipt Date: 20051010
  Transmission Date: 20060701
  Serious: Yes (Other)
  Sender: FDA-Public Use
  Company Number: HQWYE085518OCT05

PATIENT
  Sex: Female

DRUGS (2)
  1. ETHAMBUTOL, TABLET [Suspect]
     Indication: TUBERCULOSIS
     Dosage: 22MG/KG/PER DAY/047
  2. PYRAZINAMIDE [Suspect]
     Indication: TUBERCULOSIS
     Dosage: 21MG/KG/PER DAY/047

REACTIONS (1)
  - HEPATITIS [None]
